FAERS Safety Report 19043025 (Version 2)
Quarter: 2021Q1

REPORT INFORMATION
  Report Type: Report from Study
  Country: US (occurrence: US)
  Receive Date: 20210323
  Receipt Date: 20210330
  Transmission Date: 20210420
  Serious: Yes (Hospitalization)
  Sender: FDA-Public Use
  Company Number: US-PFIZER INC-2021257364

PATIENT
  Age: 10 Year
  Sex: Male
  Weight: 27 kg

DRUGS (3)
  1. DALTEPARIN SODIUM [Suspect]
     Active Substance: DALTEPARIN SODIUM
     Dosage: 10 UNITS/KG, DAILY
  2. ASPIRIN (E.C.) [Suspect]
     Active Substance: ASPIRIN
     Dosage: 75 MG
  3. ASPIRIN (E.C.) [Suspect]
     Active Substance: ASPIRIN
     Dosage: 5 MG/KG, DAILY

REACTIONS (1)
  - Ischaemic stroke [Recovered/Resolved]
